FAERS Safety Report 10511234 (Version 1)
Quarter: 2014Q4

REPORT INFORMATION
  Report Type: Spontaneous
  Country: US (occurrence: None)
  Receive Date: 20141009
  Receipt Date: 20141009
  Transmission Date: 20150528
  Serious: Yes (Life-Threatening, Hospitalization)
  Sender: FDA-Public Use
  Company Number: None

PATIENT
  Age: 19 Year
  Sex: Male
  Weight: 92.7 kg

DRUGS (8)
  1. CELLCEPT [Concomitant]
     Active Substance: MYCOPHENOLATE MOFETIL\MYCOPHENOLATE MOFETIL HYDROCHLORIDE
  2. H.P. ACTHAR [Concomitant]
     Active Substance: CORTICOTROPIN
  3. ACTHAR [Suspect]
     Active Substance: CORTICOTROPIN
     Indication: NEPHROTIC SYNDROME
     Dosage: 80 UNITS, 3 TIMES PER WEEK, SUBCUTANEOUS
     Route: 058
     Dates: start: 20140917, end: 20141006
  4. NEORAL 25 MG [Concomitant]
  5. PREDNISONE. [Concomitant]
     Active Substance: PREDNISONE
  6. VASOTEC [Concomitant]
     Active Substance: ENALAPRIL MALEATE
  7. PREVACID [Concomitant]
     Active Substance: LANSOPRAZOLE
  8. NEORAL 100 MG [Concomitant]

REACTIONS (8)
  - Respiratory distress [None]
  - Pulmonary embolism [None]
  - Discomfort [None]
  - Peripheral swelling [None]
  - Insomnia [None]
  - Weight increased [None]
  - Blood creatinine increased [None]
  - Abdominal distension [None]

NARRATIVE: CASE EVENT DATE: 20141006
